FAERS Safety Report 5044338-6 (Version None)
Quarter: 2006Q3

REPORT INFORMATION
  Report Type: 
  Country: None (occurrence: None)
  Receive Date: 20060706
  Receipt Date: 20060601
  Transmission Date: 20061208
  Serious: Yes (Hospitalization)
  Sender: FDA-Public Use
  Company Number: US-SANOFI-SYNTHELABO-A03200603496

PATIENT
  Age: 67 Year
  Sex: Male

DRUGS (6)
  1. ELOXATIN [Suspect]
     Indication: HEPATIC NEOPLASM MALIGNANT
     Route: 042
     Dates: start: 20060531, end: 20060531
  2. DIGOXIN [Concomitant]
     Dosage: UNK
     Route: 048
  3. ENALAPRIL [Concomitant]
     Dosage: UNK
     Route: 048
  4. COREG [Concomitant]
     Dosage: UNK
     Route: 048
  5. COUMADIN [Concomitant]
     Dosage: UNK
     Route: 048
  6. GEMCITABINE [Suspect]
     Indication: HEPATIC NEOPLASM MALIGNANT
     Route: 042

REACTIONS (6)
  - ABDOMINAL PAIN [None]
  - ANAPHYLACTIC SHOCK [None]
  - CARDIO-RESPIRATORY ARREST [None]
  - CHEST PAIN [None]
  - FLUSHING [None]
  - LOSS OF CONSCIOUSNESS [None]
